FAERS Safety Report 4574544-6 (Version None)
Quarter: 2005Q1

REPORT INFORMATION
  Report Type: 
  Country: None (occurrence: None)
  Receive Date: 20050208
  Receipt Date: 20031030
  Transmission Date: 20050727
  Serious: No
  Sender: FDA-Public Use
  Company Number: US-GLAXOSMITHKLINE-A0432659A

PATIENT
  Age: 21 Year
  Sex: Female

DRUGS (2)
  1. PAXIL [Suspect]
     Indication: MIGRAINE
     Dosage: 20MG PER DAY
     Route: 048
     Dates: start: 20000628
  2. AMITRIPTYLINE [Concomitant]

REACTIONS (4)
  - DRUG WITHDRAWAL SYNDROME [None]
  - HEADACHE [None]
  - NAUSEA [None]
  - VOMITING [None]
